FAERS Safety Report 6723758-5 (Version None)
Quarter: 2010Q2

REPORT INFORMATION
  Report Type: 
  Country: None (occurrence: None)
  Receive Date: 20100513
  Receipt Date: 20100506
  Transmission Date: 20101027
  Serious: Yes (Hospitalization)
  Sender: FDA-Public Use
  Company Number: FR-ABBOTT-10P-056-0634714-00

PATIENT
  Sex: Female
  Weight: 61 kg

DRUGS (4)
  1. VERCYTE [Suspect]
     Indication: LEUKAEMIA
     Dates: start: 20100101, end: 20100301
  2. SENOPHILE [Suspect]
     Indication: DRUG USE FOR UNKNOWN INDICATION
  3. CREAM WITH LAVENDER (NOS) [Suspect]
     Indication: DRUG USE FOR UNKNOWN INDICATION
  4. CREAM WITH CALENDULA (NOS) [Suspect]
     Indication: DRUG USE FOR UNKNOWN INDICATION

REACTIONS (3)
  - DERMATITIS CONTACT [None]
  - DRUG ERUPTION [None]
  - GENERALISED ERYTHEMA [None]
